FAERS Safety Report 17868971 (Version 1)
Quarter: 2020Q2

REPORT INFORMATION
  Report Type: Report from Study
  Country: DE (occurrence: DE)
  Receive Date: 20200608
  Receipt Date: 20200608
  Transmission Date: 20200714
  Serious: Yes (Hospitalization)
  Sender: FDA-Public Use
  Company Number: DE-ROCHE-2538874

PATIENT
  Age: 53 Year
  Sex: Female
  Weight: 57 kg

DRUGS (10)
  1. BEVACIZUMAB. [Suspect]
     Active Substance: BEVACIZUMAB
     Indication: NON-SMALL CELL LUNG CANCER
     Route: 065
     Dates: start: 20200123
  2. NAB-PACLITAXEL [Suspect]
     Active Substance: PACLITAXEL
     Indication: NON-SMALL CELL LUNG CANCER
     Dosage: 170 MG/M^2
     Route: 042
     Dates: start: 20200123, end: 20200123
  3. ATEZOLIZUMAB. [Suspect]
     Active Substance: ATEZOLIZUMAB
     Indication: NON-SMALL CELL LUNG CANCER
     Route: 041
     Dates: start: 20200123
  4. NAB-PACLITAXEL [Suspect]
     Active Substance: PACLITAXEL
     Dosage: 100 MG/M^2
     Route: 042
     Dates: start: 20200123
  5. ATORVASTATIN [Concomitant]
     Active Substance: ATORVASTATIN
     Route: 048
  6. CARBOPLATIN. [Suspect]
     Active Substance: CARBOPLATIN
     Indication: NON-SMALL CELL LUNG CANCER
     Dosage: 5 MG/MIN*ML
     Route: 042
     Dates: start: 20200123
  7. MONO EMBOLEX [Concomitant]
     Active Substance: CERTOPARIN SODIUM
     Route: 048
  8. BRILIQUE [Concomitant]
     Active Substance: TICAGRELOR
     Route: 048
     Dates: start: 20200127
  9. DEXAMETHASONE. [Concomitant]
     Active Substance: DEXAMETHASONE
     Route: 048
  10. PANTOPRAZOLE [Concomitant]
     Active Substance: PANTOPRAZOLE
     Route: 048

REACTIONS (3)
  - Intentional product use issue [Unknown]
  - Off label use [Unknown]
  - Ischaemic stroke [Not Recovered/Not Resolved]

NARRATIVE: CASE EVENT DATE: 20200123
